FAERS Safety Report 4911905-7 (Version None)
Quarter: 2006Q1

REPORT INFORMATION
  Report Type: 
  Country: None (occurrence: None)
  Receive Date: 20060215
  Receipt Date: 20060202
  Transmission Date: 20060701
  Serious: Yes (Death, Hospitalization)
  Sender: FDA-Public Use
  Company Number: CH-BRISTOL-MYERS SQUIBB COMPANY-13270442

PATIENT
  Age: 56 Year
  Sex: Female

DRUGS (14)
  1. GLUCOPHAGE [Suspect]
     Indication: DIABETES MELLITUS NON-INSULIN-DEPENDENT
     Route: 048
  2. SELIPRAN TABS 20 MG [Suspect]
     Indication: HYPERLIPIDAEMIA
     Route: 048
  3. TORSEMIDE [Suspect]
     Route: 048
  4. SALAZOPYRIN [Suspect]
     Indication: CROHN'S DISEASE
     Route: 048
  5. NEXIUM [Suspect]
     Indication: GASTRITIS
     Route: 048
  6. PURINETHOL [Suspect]
     Indication: AUTOIMMUNE THYROIDITIS
     Route: 048
  7. BENERVA [Concomitant]
     Indication: MALABSORPTION
     Route: 048
  8. KONAKION [Concomitant]
     Indication: MALABSORPTION
     Route: 048
  9. NOROXIN [Concomitant]
     Indication: CYSTITIS
     Route: 048
     Dates: start: 20051021, end: 20051023
  10. BACTRIM [Concomitant]
     Indication: BRONCHIECTASIS
     Dosage: DOSAGE FORM= 800 MG/160 MG
     Route: 048
  11. BELOC [Concomitant]
     Indication: ESSENTIAL HYPERTENSION
     Route: 048
  12. ZYRTEC [Concomitant]
     Route: 048
  13. SPIRIVA [Concomitant]
     Indication: CHRONIC OBSTRUCTIVE PULMONARY DISEASE
     Route: 039
  14. VITARUBIN [Concomitant]
     Indication: ANAEMIA VITAMIN B12 DEFICIENCY
     Route: 058

REACTIONS (10)
  - ANAEMIA MACROCYTIC [None]
  - ASTHENIA [None]
  - HEPATITIS [None]
  - LACTIC ACIDOSIS [None]
  - MALABSORPTION [None]
  - METABOLIC ACIDOSIS [None]
  - MULTI-ORGAN FAILURE [None]
  - PANCREATITIS ACUTE [None]
  - RENAL FAILURE [None]
  - RESPIRATORY FAILURE [None]
